FAERS Safety Report 9081465 (Version 2)
Quarter: 2013Q1

REPORT INFORMATION
  Report Type: Other
  Country: LT (occurrence: LT)
  Receive Date: 20130130
  Receipt Date: 20130201
  Transmission Date: 20140127
  Serious: Yes (Other)
  Sender: FDA-Public Use
  Company Number: LT-US-EMD SERONO, INC.-7190066

PATIENT
  Age: 55 Year
  Sex: Female

DRUGS (3)
  1. MITOXANTRONE [Suspect]
     Indication: B-CELL LYMPHOMA
  2. DEXAMETHASONE [Suspect]
     Indication: B-CELL LYMPHOMA
  3. FLUDARABINE PHOSPHATE [Suspect]
     Indication: B-CELL LYMPHOMA
     Route: 042

REACTIONS (1)
  - Pulmonary toxicity [Recovered/Resolved]
